FAERS Safety Report 21957094 (Version 1)
Quarter: 2023Q1

REPORT INFORMATION
  Report Type: Spontaneous
  Country: JP (occurrence: JP)
  Receive Date: 20230206
  Receipt Date: 20230206
  Transmission Date: 20230417
  Serious: Yes (Other)
  Sender: FDA-Public Use
  Company Number: JP-PFIZER INC-PV202300019348

PATIENT
  Age: 50 Year
  Sex: Male

DRUGS (2)
  1. INLYTA [Suspect]
     Active Substance: AXITINIB
     Dosage: UNK
     Route: 048
  2. BAVENCIO [Suspect]
     Active Substance: AVELUMAB
     Dosage: UNK
     Route: 041

REACTIONS (2)
  - Hepatitis [Unknown]
  - Hypertension [Unknown]
